APPROVED DRUG PRODUCT: RANITIDINE HYDROCHLORIDE
Active Ingredient: RANITIDINE HYDROCHLORIDE
Strength: EQ 150MG BASE
Dosage Form/Route: TABLET;ORAL
Application: A200536 | Product #001
Applicant: STRIDES PHARMA GLOBAL PTE LTD
Approved: Jun 28, 2011 | RLD: No | RS: No | Type: DISCN